FAERS Safety Report 7190586-9 (Version None)
Quarter: 2010Q4

REPORT INFORMATION
  Report Type: 
  Country: None (occurrence: None)
  Receive Date: 20101206
  Receipt Date: 20101126
  Transmission Date: 20110411
  Serious: Yes (Other)
  Sender: FDA-Public Use
  Company Number: 2010SP056563

PATIENT
  Age: 29 Year
  Sex: Female

DRUGS (2)
  1. NUVARING [Suspect]
     Indication: CONTRACEPTION
     Dosage: QM; VAG
     Route: 067
     Dates: start: 20091001
  2. NORDETTE-28 [Concomitant]

REACTIONS (6)
  - ANXIETY [None]
  - INSOMNIA [None]
  - NECK PAIN [None]
  - THYROIDITIS [None]
  - TREMOR [None]
  - WEIGHT DECREASED [None]
